FAERS Safety Report 20710622 (Version 3)
Quarter: 2022Q3

REPORT INFORMATION
  Report Type: Spontaneous
  Country: US (occurrence: US)
  Receive Date: 20220414
  Receipt Date: 20220720
  Transmission Date: 20221027
  Serious: Yes (Hospitalization)
  Sender: FDA-Public Use
  Company Number: US-PFIZER INC-202200552354

PATIENT
  Age: 75 Year
  Sex: Female

DRUGS (1)
  1. IBRANCE [Suspect]
     Active Substance: PALBOCICLIB
     Dosage: 100 MG
     Dates: start: 20211222

REACTIONS (5)
  - Lung disorder [Unknown]
  - Malaise [Unknown]
  - Eating disorder [Unknown]
  - Weight decreased [Unknown]
  - Neoplasm progression [Unknown]
